FAERS Safety Report 24903825 (Version 6)
Quarter: 2025Q3

REPORT INFORMATION
  Report Type: Report from Study
  Country: US (occurrence: US)
  Receive Date: 20250130
  Receipt Date: 20250929
  Transmission Date: 20251020
  Serious: Yes (Hospitalization)
  Sender: SUNOVION
  Company Number: US-SUMITOMO PHARMA SWITZERLAND GMBH-2025SPA000752

PATIENT
  Age: 77 Year
  Sex: Male

DRUGS (4)
  1. ORGOVYX [Suspect]
     Active Substance: RELUGOLIX
     Indication: Prostate cancer
     Dosage: 360 MG, SINGLE
     Route: 048
     Dates: start: 20241219, end: 20241219
  2. ORGOVYX [Suspect]
     Active Substance: RELUGOLIX
     Dosage: 120 MG, QD
     Route: 048
     Dates: start: 20241220
  3. XTANDI [Concomitant]
     Active Substance: ENZALUTAMIDE
     Indication: Prostate cancer
     Dosage: 160 MG, QD
     Dates: start: 20241219
  4. XTANDI [Concomitant]
     Active Substance: ENZALUTAMIDE
     Dosage: 2 DF, QD (2 CAPSULES DAILY)

REACTIONS (9)
  - Fall [Unknown]
  - Hypertonic bladder [Unknown]
  - Urine abnormality [Recovered/Resolved]
  - Dysuria [Recovering/Resolving]
  - Somnolence [Unknown]
  - Muscle tightness [Unknown]
  - Dizziness [Unknown]
  - Asthenia [Unknown]
  - Constipation [Unknown]
